FAERS Safety Report 8289971-3 (Version None)
Quarter: 2012Q2

REPORT INFORMATION
  Report Type: 
  Country: None (occurrence: None)
  Receive Date: 20120417
  Receipt Date: 20120410
  Transmission Date: 20120825
  Serious: Yes (Death)
  Sender: FDA-Public Use
  Company Number: US-CELGENEUS-163-21880-11102712

PATIENT
  Sex: Male

DRUGS (5)
  1. GLIPIZIDE [Concomitant]
     Indication: DIABETES MELLITUS
     Dosage: 5 MILLIGRAM
     Route: 048
     Dates: start: 20101222, end: 20111009
  2. LACTULOSE [Concomitant]
     Indication: ENCEPHALOPATHY
     Dosage: 2 TABLESPOON
     Route: 048
     Dates: start: 20110829, end: 20111011
  3. REVLIMID [Suspect]
     Indication: MULTIPLE MYELOMA
     Dosage: 25 MILLIGRAM
     Route: 048
     Dates: start: 20110521, end: 20110901
  4. SIMVASTATIN [Concomitant]
     Dosage: 20 MILLIGRAM
     Route: 048
     Dates: start: 20091015, end: 20110928
  5. WARFARIN SODIUM [Concomitant]
     Route: 065
     Dates: start: 20110701, end: 20110919

REACTIONS (1)
  - MULTIPLE MYELOMA [None]
